FAERS Safety Report 8010116-9 (Version None)
Quarter: 2011Q4

REPORT INFORMATION
  Report Type: 
  Country: None (occurrence: None)
  Receive Date: 20111228
  Receipt Date: 20111215
  Transmission Date: 20120403
  Serious: Yes (Hospitalization)
  Sender: FDA-Public Use
  Company Number: US-BAYER-2011-049641

PATIENT
  Age: 28 Year
  Sex: Female

DRUGS (9)
  1. FLUOXETINE [Concomitant]
  2. TOPAMAX [Concomitant]
  3. DARVOCET [Concomitant]
  4. SPIRONOLACTONE [Concomitant]
  5. BUSPIRONE HCL [Concomitant]
  6. DROSPIRENONE AND ETHINYL ESTRADIOL [Suspect]
     Indication: MENSTRUATION IRREGULAR
     Dosage: UNK
     Dates: start: 20070101
  7. BUSPAR [Concomitant]
  8. YASMIN [Suspect]
     Indication: MENSTRUATION IRREGULAR
     Dosage: UNK
     Dates: start: 20070101
  9. ZOSYN [Concomitant]

REACTIONS (4)
  - FEAR [None]
  - CHOLELITHIASIS [None]
  - PAIN [None]
  - INJURY [None]
